FAERS Safety Report 26209390 (Version 1)
Quarter: 2025Q4

REPORT INFORMATION
  Report Type: Spontaneous
  Country: JP (occurrence: JP)
  Receive Date: 20251229
  Receipt Date: 20251229
  Transmission Date: 20260117
  Serious: Yes (Hospitalization, Other)
  Sender: PFIZER
  Company Number: JP-ONO-2025JP010786

PATIENT
  Age: 77 Year
  Sex: Female
  Weight: 40.5 kg

DRUGS (23)
  1. BRAFTOVI [Suspect]
     Active Substance: ENCORAFENIB
     Indication: Rectal cancer
     Dosage: UNK
     Route: 048
     Dates: start: 20250410, end: 20250415
  2. BRAFTOVI [Suspect]
     Active Substance: ENCORAFENIB
     Dosage: 225 MG, EVERYDAY
     Route: 048
     Dates: start: 20250416, end: 20250423
  3. BRAFTOVI [Suspect]
     Active Substance: ENCORAFENIB
     Dosage: 150 MG, EVERYDAY
     Route: 048
     Dates: start: 20250626
  4. MEKTOVI [Suspect]
     Active Substance: BINIMETINIB
     Indication: Rectal cancer
     Dosage: UNK
     Route: 048
     Dates: start: 20250410, end: 20250415
  5. MEKTOVI [Suspect]
     Active Substance: BINIMETINIB
     Dosage: 15 MG, Q12H
     Route: 048
     Dates: start: 20250416, end: 20250423
  6. MEKTOVI [Suspect]
     Active Substance: BINIMETINIB
     Dosage: 15 MG, Q12H
     Route: 048
     Dates: end: 20250605
  7. ATORVASTATIN CALCIUM TRIHYDRATE [Suspect]
     Active Substance: ATORVASTATIN CALCIUM TRIHYDRATE
     Dosage: 10 MG, DAILY
     Route: 048
  8. MIYA-BM [Concomitant]
     Active Substance: CLOSTRIDIUM BUTYRICUM SPORES STRAIN M-55
     Indication: Prophylaxis
     Dosage: 1 DF, EVERYDAY
     Route: 048
     Dates: start: 20230104
  9. VITAMEDIN [BENFOTIAMINE;CYANOCOBALAMIN;PYRIDOXINE HYDROCHLORIDE] [Concomitant]
     Indication: Prophylaxis
     Dosage: 1 DF, Q8H
     Route: 048
     Dates: start: 20230104
  10. FUROSEMIDE [Concomitant]
     Active Substance: FUROSEMIDE
     Dosage: 10 MG, EVERYDAY
     Route: 048
     Dates: start: 20241224
  11. MINOCYCLINE HYDROCHLORIDE [Concomitant]
     Active Substance: MINOCYCLINE HYDROCHLORIDE
     Indication: Prophylaxis
     Dosage: 100 MG, Q12H
     Route: 048
     Dates: start: 20250410
  12. CALCIUM LACTATE [Concomitant]
     Active Substance: CALCIUM LACTATE
     Indication: Prophylaxis
     Dosage: 1 DF, Q8H (POWDER)
     Route: 048
     Dates: start: 20250410
  13. MAGNESIUM OXIDE [Concomitant]
     Active Substance: MAGNESIUM OXIDE
     Indication: Rectal cancer
     Dosage: 660 MG, Q8H
     Route: 048
     Dates: start: 20241030
  14. AZ [SODIUM BICARBONATE;SODIUM GUALENATE HYDRATE] [Concomitant]
     Indication: Prophylaxis
     Dosage: 2 G, Q8H
     Route: 049
     Dates: start: 20230104
  15. PRIMPERAN [Concomitant]
     Active Substance: METOCLOPRAMIDE HYDROCHLORIDE
     Indication: Hiccups
     Dosage: 5 MG, PRN
     Route: 048
     Dates: start: 20230105
  16. BERBERINE HYDROCHLORIDE/GERANIUM THUNBERGII HERB [Concomitant]
     Indication: Diarrhoea
     Dosage: 2 DF, PRN
     Route: 048
     Dates: start: 20240717
  17. BETAMETHASONE DIPROPIONATE [Concomitant]
     Active Substance: BETAMETHASONE DIPROPIONATE
     Indication: Cutaneous symptom
     Dosage: UNK, Q12H, LOTION (EXCEPT LOTION FOR EYE)
     Route: 061
     Dates: start: 20250410
  18. BETAMETHASONE DIPROPIONATE [Concomitant]
     Active Substance: BETAMETHASONE DIPROPIONATE
     Indication: Cutaneous symptom
     Dosage: UNK, Q12H
     Route: 061
     Dates: start: 20250212
  19. HEPARINOID [Concomitant]
     Indication: Cutaneous symptom
     Dosage: UNK, Q12H
     Route: 061
     Dates: start: 20250212
  20. CLOBETASONE BUTYRATE [Concomitant]
     Active Substance: CLOBETASONE BUTYRATE
     Indication: Cutaneous symptom
     Dosage: UNK, Q12H
     Route: 061
     Dates: start: 20250410
  21. VONOPRAZAN FUMARATE [Concomitant]
     Active Substance: VONOPRAZAN FUMARATE
     Dosage: 10 MG, EVERYDAY
     Route: 048
  22. REBAMIPIDE [Concomitant]
     Active Substance: REBAMIPIDE
     Dosage: 100 MG, Q12H
     Route: 048
  23. AMLODIPINE [Concomitant]
     Active Substance: AMLODIPINE BESYLATE
     Dosage: 5 MG, EVERYDAY
     Route: 048

REACTIONS (11)
  - Rhabdomyolysis [Recovering/Resolving]
  - Enterocolitis [Unknown]
  - Blood creatine phosphokinase increased [Recovering/Resolving]
  - Renal failure [Recovering/Resolving]
  - Neuropathy peripheral [Unknown]
  - Decreased appetite [Recovered/Resolved]
  - Fall [Unknown]
  - Wrist fracture [Unknown]
  - Musculoskeletal pain [Unknown]
  - Pyrexia [Recovered/Resolved]
  - Dry skin [Unknown]

NARRATIVE: CASE EVENT DATE: 20250412
